APPROVED DRUG PRODUCT: FLUOXETINE HYDROCHLORIDE
Active Ingredient: FLUOXETINE HYDROCHLORIDE
Strength: EQ 10MG BASE
Dosage Form/Route: CAPSULE;ORAL
Application: A075452 | Product #001 | TE Code: AB1
Applicant: TEVA PHARMACEUTICALS USA INC
Approved: Jan 29, 2002 | RLD: No | RS: No | Type: RX